FAERS Safety Report 20896271 (Version 1)
Quarter: 2022Q2

REPORT INFORMATION
  Report Type: Spontaneous
  Country: US (occurrence: None)
  Receive Date: 20220531
  Receipt Date: 20220531
  Transmission Date: 20220720
  Serious: No
  Sender: FDA-Public Use
  Company Number: None

PATIENT
  Age: 76 Year
  Sex: Female
  Weight: 71.21 kg

DRUGS (5)
  1. RETACRIT [Suspect]
     Active Substance: EPOETIN ALFA-EPBX
     Indication: Anaemia
     Dosage: 20,000 UNITS/1 ML ONCE MONTHLY SQ? ?
     Route: 058
  2. TIKOSYN [Concomitant]
     Active Substance: DOFETILIDE
  3. ELIQUIS [Concomitant]
     Active Substance: APIXABAN
  4. EPINEPHRINE [Concomitant]
     Active Substance: EPINEPHRINE
  5. SIMVASTATIN [Concomitant]
     Active Substance: SIMVASTATIN

REACTIONS (1)
  - Therapy non-responder [None]
